FAERS Safety Report 5915297-6 (Version None)
Quarter: 2008Q3

REPORT INFORMATION
  Report Type: 
  Country: None (occurrence: None)
  Receive Date: 20080909
  Receipt Date: 20080204
  Transmission Date: 20090109
  Serious: Yes (Death)
  Sender: FDA-Public Use
  Company Number: 163-20785-08010268 (0)

PATIENT
  Age: 46 Year
  Sex: Female

DRUGS (7)
  1. THALOMID [Suspect]
     Indication: UVEITIS
     Dosage: 100 MG, BID ORAL
     Route: 048
     Dates: start: 20030522, end: 20071201
  2. LIPITOR [Concomitant]
  3. ASPIRIN [Concomitant]
  4. MULTIVITAMIN [Concomitant]
  5. FLONASE [Concomitant]
  6. ALLEGRA [Concomitant]
  7. NORVASC [Concomitant]

REACTIONS (1)
  - ACUTE MYOCARDIAL INFARCTION [None]
